FAERS Safety Report 22381270 (Version 1)
Quarter: 2023Q2

REPORT INFORMATION
  Report Type: Spontaneous
  Country: US (occurrence: US)
  Receive Date: 20230530
  Receipt Date: 20230530
  Transmission Date: 20230721
  Serious: No
  Sender: FDA-Public Use
  Company Number: ENDG23-01858

PATIENT
  Age: 25 Year
  Sex: Male

DRUGS (6)
  1. VARENICLINE [Suspect]
     Active Substance: VARENICLINE
     Indication: Smoking cessation therapy
     Dosage: 0.5 MG, OD (DAYS ONE TO THREE)
     Route: 048
     Dates: start: 20230407
  2. VARENICLINE [Suspect]
     Active Substance: VARENICLINE
     Dosage: 0.5 MG, BID (IN THE MORNING AND EVENING) (DAYS FOUR TO SEVEN)
     Route: 048
  3. VARENICLINE [Suspect]
     Active Substance: VARENICLINE
     Dosage: 1 MG, BID (IN THE MORNING AND EVENING) (DAY EIGHT TO END OF TREAMENT)
     Route: 048
  4. ATOMOXETINE [Concomitant]
     Active Substance: ATOMOXETINE
     Indication: Product used for unknown indication
     Dosage: UNK UNKNOWN, UNKNOWN
     Route: 065
  5. ERGOCALCIFEROL [Concomitant]
     Active Substance: ERGOCALCIFEROL
     Indication: Product used for unknown indication
     Dosage: UNK UNKNOWN, UNKNOWN
     Route: 065
  6. GUAIFENESIN [Concomitant]
     Active Substance: GUAIFENESIN
     Indication: Product used for unknown indication
     Dosage: UNK UNKNOWN, UNKNOWN
     Route: 065

REACTIONS (2)
  - Abnormal dreams [Recovered/Resolved]
  - Palpitations [Recovered/Resolved]

NARRATIVE: CASE EVENT DATE: 20230408
